FAERS Safety Report 23144220 (Version 1)
Quarter: 2023Q4

REPORT INFORMATION
  Report Type: Spontaneous
  Country: KR (occurrence: KR)
  Receive Date: 20231103
  Receipt Date: 20231103
  Transmission Date: 20240110
  Serious: No
  Sender: FDA-Public Use
  Company Number: KR-PFIZER INC-PV202300177683

PATIENT
  Sex: Female

DRUGS (2)
  1. PAXLOVID [Suspect]
     Active Substance: NIRMATRELVIR\RITONAVIR
     Indication: COVID-19 treatment
     Dosage: NIRMATRELVIR 4 TABLETS AND RITONAVIR 2 TABLETS
     Route: 048
     Dates: start: 20231026, end: 20231026
  2. PAXLOVID [Suspect]
     Active Substance: NIRMATRELVIR\RITONAVIR
     Dosage: NIRMATRELVIR 3 TABLETS
     Route: 048
     Dates: start: 20231027

REACTIONS (5)
  - Accidental overdose [Recovered/Resolved]
  - Product dose omission issue [Recovered/Resolved]
  - Dysgeusia [Unknown]
  - Distractibility [Not Recovered/Not Resolved]
  - Memory impairment [Not Recovered/Not Resolved]

NARRATIVE: CASE EVENT DATE: 20231001
